FAERS Safety Report 7917303-6 (Version None)
Quarter: 2011Q4

REPORT INFORMATION
  Report Type: 
  Country: None (occurrence: None)
  Receive Date: 20111114
  Receipt Date: 20111031
  Transmission Date: 20120403
  Serious: Yes (Life-Threatening, Hospitalization, Disabling)
  Sender: FDA-Public Use
  Company Number: TPG2011A02984

PATIENT
  Age: 66 Year
  Sex: Male

DRUGS (1)
  1. COMPETACT (PIOGLITAZONE HYDROCHLORIDE, METFORMIN HYDROCHLORIDE) [Suspect]
     Indication: DIABETES MELLITUS
     Dosage: PIOGLITAZONE/METFORMIN 15/850 MG, PER ORAL
     Route: 048
     Dates: start: 20100301, end: 20110301

REACTIONS (1)
  - BLADDER CANCER [None]
